FAERS Safety Report 21871617 (Version 2)
Quarter: 2023Q1

REPORT INFORMATION
  Report Type: Report from Study
  Country: IT (occurrence: IT)
  Receive Date: 20230117
  Receipt Date: 20230201
  Transmission Date: 20230418
  Serious: Yes (Other)
  Sender: FDA-Public Use
  Company Number: None

PATIENT
  Age: 9 Year
  Sex: Male
  Weight: 54 kg

DRUGS (8)
  1. VINCRISTINE [Suspect]
     Active Substance: VINCRISTINE
     Indication: Acute lymphocytic leukaemia
     Dosage: 2 MG/DAY ON 09/28/2022- 10/05/2022- 10/12/22- 10/24/22
     Dates: start: 20220928, end: 20221024
  2. PURINETHOL [Suspect]
     Active Substance: MERCAPTOPURINE
     Indication: Acute lymphocytic leukaemia
     Dosage: 85 MG ON 7/11/22?87.5 MG FROM 11/8/22 TO 11/12/22
     Dates: start: 20221107, end: 20221212
  3. DAUNORUBICIN [Suspect]
     Active Substance: DAUNORUBICIN
     Indication: Acute lymphocytic leukaemia
     Dosage: 43 MG/DAY ON 09/28/2022-05/10/2022-12/10/22-24/10/22
     Dates: start: 20220928, end: 20221024
  4. CYCLOPHOSPHAMIDE [Suspect]
     Active Substance: CYCLOPHOSPHAMIDE
     Indication: Acute lymphocytic leukaemia
     Dosage: 1.398 MILLIGRAM DAILY; 1,398 MG/DAY IN DATA 7/11/22 AND 12/12/22
     Dates: start: 20221107, end: 20221212
  5. CYTARABINE [Suspect]
     Active Substance: CYTARABINE
     Indication: Acute lymphocytic leukaemia
     Dosage: 104 MG FROM 11/9/22 TO 11/12/22?99.50 MG/DAY FROM DAY 23 TO DAY 11/26/22?99.50 MG/DAY FROM DAY 29/11
     Dates: start: 20221109, end: 20221210
  6. ONCASPAR [Suspect]
     Active Substance: PEGASPARGASE
     Indication: Acute lymphocytic leukaemia
     Dosage: 3597.5 IU (INTERNATIONAL UNIT) DAILY; 3597.5 IU/DAY IN DATA 03/10/2022-17/10/22
     Dates: start: 20221003, end: 20221017
  7. OMEPRAZOLE [Concomitant]
     Active Substance: OMEPRAZOLE
     Indication: Product used for unknown indication
     Dosage: 40 MILLIGRAM DAILY; 40 MG/DAY
     Dates: start: 20220920, end: 20221008
  8. DEXAMETHASONE [Concomitant]
     Active Substance: DEXAMETHASONE
     Indication: Acute lymphocytic leukaemia
     Dosage: 5 MG X 3V/DAY (FROM 28/9 TO 08/10/22)?2.5 MG 3 TIMES A DAY FROM 10/18/22 TO 10/19/22?1 MG 3 TIMES A
     Dates: start: 20220928, end: 20221024

REACTIONS (3)
  - Leukopenia [Not Recovered/Not Resolved]
  - Pancytopenia [Not Recovered/Not Resolved]
  - Anaemia [Not Recovered/Not Resolved]

NARRATIVE: CASE EVENT DATE: 20220930
